FAERS Safety Report 8231028-1 (Version None)
Quarter: 2012Q1

REPORT INFORMATION
  Report Type: 
  Country: None (occurrence: None)
  Receive Date: 20120320
  Receipt Date: 20120306
  Transmission Date: 20120608
  Serious: Yes (Hospitalization)
  Sender: FDA-Public Use
  Company Number: AMAG201200145

PATIENT
  Age: 86 Year
  Sex: Male
  Weight: 77.1 kg

DRUGS (7)
  1. ALTACE [Concomitant]
  2. LOVENOX [Concomitant]
  3. SIMVASTATIN [Concomitant]
  4. FERAHEME [Suspect]
     Indication: IRON DEFICIENCY ANAEMIA
     Dosage: 150 MG, SINGLE, IV PUSH
     Route: 042
     Dates: start: 20120224, end: 20120224
  5. CORGARD [Concomitant]
  6. ASPIRIN [Concomitant]
  7. PROTONIX [Concomitant]

REACTIONS (7)
  - HYPOTENSION [None]
  - HYPERSENSITIVITY [None]
  - UNRESPONSIVE TO STIMULI [None]
  - HYPERHIDROSIS [None]
  - HYPOXIA [None]
  - WHEEZING [None]
  - ATRIAL FIBRILLATION [None]
